FAERS Safety Report 21751279 (Version 1)
Quarter: 2022Q4

REPORT INFORMATION
  Report Type: Other
  Country: DE (occurrence: None)
  Receive Date: 20221220
  Receipt Date: 20221220
  Transmission Date: 20230112
  Serious: No
  Sender: FDA-Public Use
  Company Number: DE-ROCHE-3244236

PATIENT
  Age: 58 Year
  Sex: Female

DRUGS (1)
  1. OCRELIZUMAB [Suspect]
     Active Substance: OCRELIZUMAB
     Indication: Primary progressive multiple sclerosis
     Route: 042
     Dates: start: 20190117

REACTIONS (1)
  - SARS-CoV-2 test positive [Recovered/Resolved]

NARRATIVE: CASE EVENT DATE: 20220401
